FAERS Safety Report 12979534 (Version 1)
Quarter: 2016Q4

REPORT INFORMATION
  Report Type: Spontaneous
  Country: US (occurrence: US)
  Receive Date: 20161128
  Receipt Date: 20161128
  Transmission Date: 20170207
  Serious: No
  Sender: FDA-Public Use
  Company Number: PHEH2016US030930

PATIENT
  Age: 63 Year
  Sex: Female

DRUGS (2)
  1. PALBOCICLIB [Suspect]
     Active Substance: PALBOCICLIB
     Indication: BREAST CANCER METASTATIC
     Dosage: 1 CAPSULE (100 MG) EVERY DAY FOR 3 WEEKSFOR 1-21 DAYS AND 7 DAYS OFF
     Route: 048
     Dates: start: 20160907
  2. LETROZOLE. [Suspect]
     Active Substance: LETROZOLE
     Indication: BREAST CANCER METASTATIC
     Dosage: 2.5 MG, QD
     Route: 048
     Dates: start: 20160907

REACTIONS (4)
  - Lymphadenopathy [Recovered/Resolved]
  - Stomatitis [Recovered/Resolved]
  - Pharyngitis [Unknown]
  - Anxiety [Unknown]

NARRATIVE: CASE EVENT DATE: 20160921
